FAERS Safety Report 8364329-7 (Version None)
Quarter: 2012Q2

REPORT INFORMATION
  Report Type: 
  Country: None (occurrence: None)
  Receive Date: 20120516
  Receipt Date: 20120508
  Transmission Date: 20120825
  Serious: No
  Sender: FDA-Public Use
  Company Number: US-PFIZER INC-2012102970

PATIENT
  Sex: Female
  Weight: 73 kg

DRUGS (1)
  1. ESTRING [Suspect]
     Indication: MENOPAUSAL SYMPTOMS
     Dosage: UNK, EVERY 3 MONTHS
     Route: 067

REACTIONS (1)
  - DRUG INEFFECTIVE [None]
